FAERS Safety Report 8366857-7 (Version None)
Quarter: 2012Q2

REPORT INFORMATION
  Report Type: 
  Country: None (occurrence: None)
  Receive Date: 20120517
  Receipt Date: 20120508
  Transmission Date: 20120825
  Serious: Yes (Other)
  Sender: FDA-Public Use
  Company Number: US-ROCHE-1066890

PATIENT

DRUGS (5)
  1. ACCUTANE [Suspect]
     Dates: start: 20050414, end: 20050515
  2. ACCUTANE [Suspect]
     Indication: ACNE
     Route: 065
     Dates: start: 19940408, end: 19940826
  3. AMNESTEEM [Suspect]
     Indication: ACNE
     Route: 065
     Dates: start: 20050314, end: 20050414
  4. SOTRET [Suspect]
     Indication: ACNE
     Route: 065
     Dates: start: 20050418, end: 20050518
  5. SOTRET [Suspect]
     Dates: start: 20050721, end: 20050821

REACTIONS (4)
  - INFLAMMATORY BOWEL DISEASE [None]
  - CROHN'S DISEASE [None]
  - COLITIS ULCERATIVE [None]
  - IRRITABLE BOWEL SYNDROME [None]
